FAERS Safety Report 10549873 (Version 2)
Quarter: 2014Q4

REPORT INFORMATION
  Report Type: Report from Study
  Country: JP (occurrence: JP)
  Receive Date: 20141028
  Receipt Date: 20141215
  Transmission Date: 20150529
  Serious: Yes (Death)
  Sender: FDA-Public Use
  Company Number: JP-PFIZER INC-2014294663

PATIENT
  Age: 81 Year
  Sex: Female

DRUGS (2)
  1. NOVASTAN [Suspect]
     Active Substance: ARGATROBAN
     Indication: CEREBRAL INFARCTION
     Dosage: 60 MG, SINGLE
     Route: 051
     Dates: start: 201303, end: 201402
  2. NOVASTAN [Suspect]
     Active Substance: ARGATROBAN
     Dosage: UNK
     Dates: start: 201303, end: 201402

REACTIONS (1)
  - Haemorrhagic cerebral infarction [Fatal]
